FAERS Safety Report 8098141-3 (Version None)
Quarter: 2012Q1

REPORT INFORMATION
  Report Type: 
  Country: None (occurrence: None)
  Receive Date: 20120128
  Receipt Date: 20110810
  Transmission Date: 20120608
  Serious: No
  Sender: FDA-Public Use
  Company Number: US-ABBOTT-11P-163-0845059-00

PATIENT
  Sex: Female

DRUGS (1)
  1. HUMIRA [Suspect]
     Indication: JUVENILE ARTHRITIS
     Route: 058
     Dates: start: 20110201

REACTIONS (4)
  - VESICOURETERIC REFLUX [None]
  - URINARY TRACT INFECTION [None]
  - EAR INFECTION [None]
  - IRRITABILITY [None]
